FAERS Safety Report 6573070-2 (Version None)
Quarter: 2010Q1

REPORT INFORMATION
  Report Type: 
  Country: None (occurrence: None)
  Receive Date: 20100208
  Receipt Date: 20100201
  Transmission Date: 20100710
  Serious: Yes (Hospitalization, Disabling)
  Sender: FDA-Public Use
  Company Number: FR-ALLERGAN-1000718US

PATIENT
  Age: 59 Year
  Sex: Male

DRUGS (4)
  1. BIMATOPROST AND TIMOLOL MALEATE [Suspect]
     Indication: GLAUCOMA
     Dosage: 2 GTT, QD
     Route: 047
     Dates: start: 20090310, end: 20091126
  2. ALPHAGAN [Concomitant]
     Indication: GLAUCOMA
     Route: 047
  3. AZOPT [Concomitant]
     Indication: GLAUCOMA
     Route: 047
  4. DIAMOX SRC [Concomitant]
     Dosage: UNK

REACTIONS (2)
  - HYPOXIA [None]
  - INTERSTITIAL LUNG DISEASE [None]
